FAERS Safety Report 4601931-X (Version None)
Quarter: 2005Q1

REPORT INFORMATION
  Report Type: 
  Country: None (occurrence: None)
  Receive Date: 20050201
  Receipt Date: 20040212
  Transmission Date: 20050727
  Serious: Yes (Other)
  Sender: FDA-Public Use
  Company Number: 200412459BWH

PATIENT
  Age: 39 Year
  Sex: Female
  Weight: 72.5755 kg

DRUGS (6)
  1. AVELOX [Suspect]
     Indication: SINUSITIS
     Dosage: 400 MG, QD, ORAL
     Route: 048
     Dates: start: 20040209, end: 20040210
  2. ALLEGRA-D [Suspect]
     Indication: SINUSITIS
     Dates: start: 20040210
  3. PAXIL [Concomitant]
  4. KLONOPIN [Concomitant]
  5. ENTEX /OLD FORM/ [Concomitant]
  6. SUDAFED 12 HOUR [Concomitant]

REACTIONS (7)
  - EYE SWELLING [None]
  - HEADACHE [None]
  - HYPERSENSITIVITY [None]
  - OEDEMA PERIPHERAL [None]
  - RASH PRURITIC [None]
  - SWELLING FACE [None]
  - URTICARIA [None]
